FAERS Safety Report 5246245-2 (Version None)
Quarter: 2007Q1

REPORT INFORMATION
  Report Type: 
  Country: None (occurrence: None)
  Receive Date: 20070221
  Receipt Date: 20070209
  Transmission Date: 20070707
  Serious: Yes (Hospitalization)
  Sender: FDA-Public Use
  Company Number: E2020-00960-SPO-FR

PATIENT
  Age: 94 Year
  Sex: Female

DRUGS (2)
  1. ARICEPT [Suspect]
     Indication: DEMENTIA ALZHEIMER'S TYPE
     Dosage: 5 MG, 1 IN 1 D, ORAL
     Route: 048
     Dates: start: 20060101, end: 20061101
  2. DIGOXIN [Suspect]
     Dosage: ORAL
     Route: 048
     Dates: end: 20061101

REACTIONS (2)
  - BRADYCARDIA [None]
  - DRUG INTERACTION [None]
